FAERS Safety Report 23568819 (Version 1)
Quarter: 2024Q1

REPORT INFORMATION
  Report Type: Spontaneous
  Country: FR (occurrence: FR)
  Receive Date: 20240227
  Receipt Date: 20240227
  Transmission Date: 20240410
  Serious: Yes (Hospitalization, Other)
  Sender: FDA-Public Use
  Company Number: FR-AFSSAPS-AN2024000176

PATIENT
  Age: 78 Year
  Sex: Male

DRUGS (2)
  1. ACYCLOVIR [Suspect]
     Active Substance: ACYCLOVIR
     Indication: Ophthalmic herpes zoster
     Dosage: UNK, VARIABLE
     Route: 042
     Dates: start: 20240103, end: 20240117
  2. CEFAZOLIN SODIUM [Suspect]
     Active Substance: CEFAZOLIN SODIUM
     Indication: Ophthalmic herpes zoster
     Dosage: 6 GRAM, ONCE A DAY
     Route: 042
     Dates: start: 20240103, end: 20240107

REACTIONS (2)
  - Encephalopathy [Recovering/Resolving]
  - Antiviral drug level above therapeutic [Recovered/Resolved]

NARRATIVE: CASE EVENT DATE: 20240105
